FAERS Safety Report 9316030 (Version 5)
Quarter: 2013Q4

REPORT INFORMATION
  Report Type: Spontaneous
  Country: US (occurrence: US)
  Receive Date: 20130530
  Receipt Date: 20131031
  Transmission Date: 20140711
  Serious: Yes (Hospitalization)
  Sender: FDA-Public Use
  Company Number: US-BIOGENIDEC-2013BI047087

PATIENT
  Age: 37 Year
  Sex: Male
  Weight: 73 kg

DRUGS (2)
  1. TYSABRI [Suspect]
     Indication: CROHN^S DISEASE
     Route: 042
     Dates: start: 20130415
  2. PREDNISONE [Concomitant]

REACTIONS (6)
  - Crohn^s disease [Recovered/Resolved]
  - Small intestinal obstruction [Recovered/Resolved]
  - Short-bowel syndrome [Unknown]
  - Hypokalaemia [Unknown]
  - Hypomagnesaemia [Unknown]
  - Intestinal stenosis [Not Recovered/Not Resolved]
